FAERS Safety Report 8311192 (Version 3)
Quarter: 2013Q2

REPORT INFORMATION
  Report Type: Spontaneous
  Country: JP (occurrence: JP)
  Receive Date: 20111227
  Receipt Date: 20130418
  Transmission Date: 20140414
  Serious: Yes (Other)
  Sender: FDA-Public Use
  Company Number: JP-B.I. PHARMACEUTICALS,INC./RIDGEFIELD-2011-BP-28401NB

PATIENT
  Age: 88 Year
  Sex: Male
  Weight: 60 kg

DRUGS (1)
  1. PRAZAXA [Suspect]
     Indication: ATRIAL FIBRILLATION
     Dosage: 220 MG
     Route: 048
     Dates: start: 20111116

REACTIONS (1)
  - Transient ischaemic attack [Recovered/Resolved]
